FAERS Safety Report 10234946 (Version 1)
Quarter: 2014Q1

REPORT INFORMATION
  Report Type: Spontaneous
  Country: US (occurrence: None)
  Receive Date: 20140306
  Receipt Date: 20140306
  Transmission Date: 20141002
  Serious: Yes (Other)
  Sender: FDA-Public Use
  Company Number: 163-21880-13093096

PATIENT
  Age: 76 Year
  Sex: Male
  Weight: 101.15 kg

DRUGS (10)
  1. REVLIMID [Suspect]
     Indication: PLASMA CELL MYELOMA
     Route: 048
     Dates: start: 20120210
  2. ELIDEL (PIMECROLIMUS) [Concomitant]
  3. GLIPIZIDE (GLIPIZIDE) [Concomitant]
  4. CRESTOR (ROSUVASTATIN) [Concomitant]
  5. PROBIOTC (BIFIDOBACTERIUM LACTIS) [Concomitant]
  6. TUMS (CALCIUM CARBONATE) [Concomitant]
  7. B 12 (CYANOCOBALAMIN) [Concomitant]
  8. D3 (COLECALCIFEROL) [Concomitant]
  9. EYE PROMISE RESTORE (OCULAR FORMULA) [Concomitant]
  10. JANUMET (JANUMET) [Concomitant]

REACTIONS (2)
  - Bone marrow failure [None]
  - Pancytopenia [None]
